FAERS Safety Report 17083244 (Version 1)
Quarter: 2019Q4

REPORT INFORMATION
  Report Type: Spontaneous
  Country: US (occurrence: US)
  Receive Date: 20191127
  Receipt Date: 20191127
  Transmission Date: 20200122
  Serious: No
  Sender: FDA-Public Use
  Company Number: US-SA-2019SA323869

PATIENT
  Age: 28 Year
  Sex: Male

DRUGS (2)
  1. IMOVAX RABIES [Suspect]
     Active Substance: RABIES VIRUS STRAIN PM-1503-3M ANTIGEN (PROPIOLACTONE INACTIVATED)
     Indication: IMMUNISATION
     Route: 065
     Dates: start: 20190830
  2. IMOGAM RABIES-HT [Suspect]
     Active Substance: HUMAN RABIES VIRUS IMMUNE GLOBULIN
     Indication: IMMUNISATION
     Dosage: UNK
     Route: 065
     Dates: start: 20190830, end: 20190830

REACTIONS (1)
  - Product administered at inappropriate site [Unknown]
